FAERS Safety Report 7997799-4 (Version None)
Quarter: 2011Q4

REPORT INFORMATION
  Report Type: 
  Country: None (occurrence: None)
  Receive Date: 20111221
  Receipt Date: 20111212
  Transmission Date: 20120403
  Serious: Yes (Hospitalization, Other)
  Sender: FDA-Public Use
  Company Number: PHHY2011IE109478

PATIENT
  Age: 50 Year
  Sex: Male

DRUGS (5)
  1. CLOZAPINE [Suspect]
     Dosage: 500 MG, DAILY
  2. AMISULPRIDE [Concomitant]
     Dosage: 20 MG, DAIILY
  3. MIRTAZAPINE [Concomitant]
     Indication: DEPRESSION
     Dosage: 15 UG, NOCTE
  4. PROCYCLIDINE HYDROCHLORIDE 2MG TAB [Concomitant]
     Dosage: 10 MG, UNK
  5. CLOZAPINE [Suspect]
     Dosage: 225 MG, UNK

REACTIONS (4)
  - PULMONARY THROMBOSIS [None]
  - DYSPNOEA [None]
  - PSYCHOTIC DISORDER [None]
  - ATELECTASIS [None]
